FAERS Safety Report 12205941 (Version 2)
Quarter: 2016Q2

REPORT INFORMATION
  Report Type: Spontaneous
  Country: US (occurrence: US)
  Receive Date: 20160323
  Receipt Date: 20160420
  Transmission Date: 20160815
  Serious: Yes (Life-Threatening, Hospitalization)
  Sender: FDA-Public Use
  Company Number: US-009507513-1603USA008212

PATIENT
  Age: 43 Year
  Sex: Male
  Weight: 66 kg

DRUGS (12)
  1. REMERON [Suspect]
     Active Substance: MIRTAZAPINE
     Dosage: 45 MG, UNK
     Route: 048
     Dates: end: 201308
  2. FLOLAN [Suspect]
     Active Substance: EPOPROSTENOL SODIUM
     Dosage: UNK; CONCENTRATION: 75000NG/ML
     Dates: start: 20020517
  3. FLOLAN [Suspect]
     Active Substance: EPOPROSTENOL SODIUM
     Dosage: UNK; CONCENTRATION: 75000NG/ML
     Route: 042
     Dates: start: 20020514
  4. FLOLAN [Suspect]
     Active Substance: EPOPROSTENOL SODIUM
     Dosage: 49.7 NG/KG/MIN; CONCENTRATION: 75000NG/ML
     Dates: start: 20030308
  5. FLOLAN [Suspect]
     Active Substance: EPOPROSTENOL SODIUM
     Dosage: UNK; CONCENTRATION: 75000NG/ML
     Dates: start: 20020517
  6. REMERON [Suspect]
     Active Substance: MIRTAZAPINE
     Dosage: UNK
     Route: 048
  7. FLOLAN [Suspect]
     Active Substance: EPOPROSTENOL SODIUM
     Dosage: 54 NG/KG/MIN; CONCENTRATION: 75000NG/ML
     Dates: start: 20020508
  8. FLOLAN [Suspect]
     Active Substance: EPOPROSTENOL SODIUM
     Dosage: UNK; CONCENTRATION: 75000NG/ML
     Dates: start: 20020517
  9. FLOLAN [Suspect]
     Active Substance: EPOPROSTENOL SODIUM
     Dosage: UNK; CONCENTRATION: 75000NG/ML
     Dates: start: 20020517
  10. FLOLAN [Suspect]
     Active Substance: EPOPROSTENOL SODIUM
     Indication: PULMONARY ARTERIAL HYPERTENSION
     Dosage: 50NG/KG/MIN54; CONCENTRATION: 75000NG/ML
     Dates: start: 20020517
  11. FLOLAN [Suspect]
     Active Substance: EPOPROSTENOL SODIUM
     Dosage: 56NG/KG MIN; CONCENTRATION: 75000NG/ML
     Dates: start: 20020508
  12. OXYGEN. [Concomitant]
     Active Substance: OXYGEN

REACTIONS (10)
  - Hypotension [Unknown]
  - Pneumonia [Recovered/Resolved]
  - Dyspnoea [Not Recovered/Not Resolved]
  - Infusion site infection [Not Recovered/Not Resolved]
  - Constipation [Not Recovered/Not Resolved]
  - Catheter site infection [Not Recovered/Not Resolved]
  - Catheter site erythema [Not Recovered/Not Resolved]
  - Dehydration [Unknown]
  - Cellulitis [Recovering/Resolving]
  - Weight decreased [Unknown]

NARRATIVE: CASE EVENT DATE: 20110223
